FAERS Safety Report 21598351 (Version 2)
Quarter: 2023Q1

REPORT INFORMATION
  Report Type: Report from Study
  Country: US (occurrence: US)
  Receive Date: 20221115
  Receipt Date: 20230316
  Transmission Date: 20230418
  Serious: No
  Sender: FDA-Public Use
  Company Number: US-ABBVIE-4159021

PATIENT
  Age: 55 Year
  Sex: Female
  Weight: 66.678 kg

DRUGS (9)
  1. HUMIRA [Suspect]
     Active Substance: ADALIMUMAB
     Indication: Ankylosing spondylitis
     Route: 058
     Dates: start: 20220509
  2. HUMIRA [Suspect]
     Active Substance: ADALIMUMAB
     Route: 058
  3. HUMIRA [Suspect]
     Active Substance: ADALIMUMAB
     Route: 058
     Dates: start: 20220815, end: 20221023
  4. DICLOFENAC [Concomitant]
     Active Substance: DICLOFENAC
     Indication: Pain
     Dosage: AS NEEDED  ?FORM STRENGTH 75 MILLIGRAM
     Route: 048
  5. Moderna [Concomitant]
     Indication: COVID-19 immunisation
     Dosage: ONE IN ONCE 1ST DOSE
     Route: 030
  6. Moderna [Concomitant]
     Indication: COVID-19 immunisation
     Dosage: ONE IN ONCE?BOOSTER DOSE
     Route: 030
  7. Moderna [Concomitant]
     Indication: COVID-19 immunisation
     Dosage: 1 IN ONCE 2ND DOSE
     Route: 030
  8. CLONIDINE [Concomitant]
     Active Substance: CLONIDINE
     Indication: Attention deficit hyperactivity disorder
     Dosage: 1 PM DAILY ?FORM 0.1 MILLIGRAM
     Route: 048
  9. PROZAC [Concomitant]
     Active Substance: FLUOXETINE HYDROCHLORIDE
     Indication: Anxiety
     Dosage: DAILY 5 AM?FROM STRENGTH 20 MILLIGRAM
     Route: 048

REACTIONS (9)
  - Anisocoria [Recovered/Resolved]
  - Vasodilatation [Unknown]
  - Back pain [Not Recovered/Not Resolved]
  - Eye disorder [Not Recovered/Not Resolved]
  - Vision blurred [Recovered/Resolved]
  - Eye pain [Unknown]
  - Injection site pruritus [Recovered/Resolved]
  - Alopecia [Unknown]
  - Migraine [Unknown]

NARRATIVE: CASE EVENT DATE: 20220821
